FAERS Safety Report 10185220 (Version 2)
Quarter: 2014Q2

REPORT INFORMATION
  Report Type: Spontaneous
  Country: US (occurrence: US)
  Receive Date: 20140521
  Receipt Date: 20140602
  Transmission Date: 20141212
  Serious: Yes (Death)
  Sender: FDA-Public Use
  Company Number: US-PFIZER INC-2014134768

PATIENT
  Sex: Female

DRUGS (1)
  1. REVATIO [Suspect]
     Indication: COR PULMONALE CHRONIC
     Dosage: UNK

REACTIONS (1)
  - Death [Fatal]
